FAERS Safety Report 4558073-1 (Version None)
Quarter: 2005Q1

REPORT INFORMATION
  Report Type: 
  Country: None (occurrence: None)
  Receive Date: 20050121
  Receipt Date: 20040908
  Transmission Date: 20050727
  Serious: Yes (Other)
  Sender: FDA-Public Use
  Company Number: US-BRISTOL-MYERS SQUIBB COMPANY-12694915

PATIENT
  Age: 45 Year
  Sex: Male

DRUGS (4)
  1. SERZONE [Suspect]
     Indication: DEPRESSION
     Dosage: DOSAGES RANGED FROM 200MG DAILY TO 450MG DAILY
     Route: 048
     Dates: start: 20000401, end: 20011108
  2. MOTRIN [Concomitant]
  3. VISTARIL [Concomitant]
  4. DEPAKOTE [Concomitant]

REACTIONS (2)
  - ALANINE AMINOTRANSFERASE INCREASED [None]
  - ASPARTATE AMINOTRANSFERASE INCREASED [None]
